FAERS Safety Report 5607124-1 (Version None)
Quarter: 2008Q1

REPORT INFORMATION
  Report Type: 
  Country: None (occurrence: None)
  Receive Date: 20080129
  Receipt Date: 20080117
  Transmission Date: 20080703
  Serious: Yes (Hospitalization, Other)
  Sender: FDA-Public Use
  Company Number: FR-PFIZER INC-2007101998

PATIENT
  Age: 12 Year
  Sex: Male

DRUGS (1)
  1. GENOTONORM [Suspect]
     Indication: GROWTH RETARDATION
     Route: 058

REACTIONS (1)
  - CELLULITIS [None]
